FAERS Safety Report 16949131 (Version 2)
Quarter: 2019Q4

REPORT INFORMATION
  Report Type: Spontaneous
  Country: US (occurrence: US)
  Receive Date: 20191023
  Receipt Date: 20191023
  Transmission Date: 20200122
  Serious: No
  Sender: FDA-Public Use
  Company Number: US-PURDUE-USA-2019-0148674

PATIENT
  Age: 86 Year
  Sex: Female

DRUGS (2)
  1. OXYCODONE [Concomitant]
     Active Substance: OXYCODONE
     Indication: ARTHRALGIA
     Dosage: 5 MG, UNK
     Route: 065
  2. OXYCODONE HCL TABLETS (RHODES 91-490) [Suspect]
     Active Substance: OXYCODONE HYDROCHLORIDE
     Indication: ARTHRALGIA
     Dosage: 30 MG, 3-4 TIMES A DAY
     Route: 048

REACTIONS (5)
  - Drug ineffective [Not Recovered/Not Resolved]
  - Product contamination [Unknown]
  - Arthralgia [Not Recovered/Not Resolved]
  - Product size issue [Unknown]
  - Gait disturbance [Not Recovered/Not Resolved]
